FAERS Safety Report 8444632-2 (Version None)
Quarter: 2012Q2

REPORT INFORMATION
  Report Type: 
  Country: None (occurrence: None)
  Receive Date: 20120618
  Receipt Date: 20120611
  Transmission Date: 20120825
  Serious: Yes (Hospitalization)
  Sender: FDA-Public Use
  Company Number: US-PFIZER INC-2012107254

PATIENT
  Sex: Female

DRUGS (15)
  1. DELTASONE [Concomitant]
     Dosage: UNK
  2. RESTASIS [Concomitant]
     Dosage: UNK
  3. PRILOSEC [Concomitant]
     Dosage: UNK
  4. LYRICA [Suspect]
     Indication: FIBROMYALGIA
  5. TOPROL-XL [Concomitant]
     Dosage: UNK
  6. ACETAMINOPHEN [Concomitant]
     Dosage: UNK
  7. ALBUTEROL [Concomitant]
     Dosage: UNK
  8. MOMETASONE [Concomitant]
     Dosage: UNK
  9. FISH OIL [Concomitant]
     Dosage: UNK
  10. ASPIRIN [Concomitant]
     Dosage: UNK
     Dates: start: 20120428, end: 20120428
  11. CLARINEX [Concomitant]
     Dosage: UNK
  12. LORTAB [Concomitant]
     Dosage: UNK
  13. LYRICA [Suspect]
     Indication: NEURALGIA
     Dosage: 50 MG, AT NIGHT
     Route: 048
     Dates: start: 20120428, end: 20120428
  14. LYRICA [Suspect]
     Indication: MYOFASCIAL PAIN SYNDROME
  15. ZANTAC [Concomitant]
     Dosage: UNK

REACTIONS (8)
  - LOCAL SWELLING [None]
  - CHEST DISCOMFORT [None]
  - SWELLING FACE [None]
  - DYSPNOEA [None]
  - TACHYCARDIA [None]
  - ERYTHEMA [None]
  - PALLOR [None]
  - THROAT TIGHTNESS [None]
